FAERS Safety Report 21803941 (Version 3)
Quarter: 2023Q1

REPORT INFORMATION
  Report Type: Report from Study
  Country: DE (occurrence: DE)
  Receive Date: 20230102
  Receipt Date: 20230327
  Transmission Date: 20230417
  Serious: Yes (Hospitalization)
  Sender: FDA-Public Use
  Company Number: DE-SA-SAC20221230000348

PATIENT
  Age: 83 Year
  Sex: Female
  Weight: 59 kg

DRUGS (14)
  1. AFLIBERCEPT [Suspect]
     Active Substance: AFLIBERCEPT
     Indication: Chemotherapy
     Dosage: 224 MG, QD
     Route: 042
     Dates: start: 20220720, end: 20220914
  2. LEUCOVORIN [Suspect]
     Active Substance: LEUCOVORIN
     Indication: Chemotherapy
     Dosage: 563.50 MG, QD
     Dates: start: 20220720, end: 20221124
  3. FLUOROURACIL [Suspect]
     Active Substance: FLUOROURACIL
     Indication: Chemotherapy
     Dosage: 3091.2 MG ONCE/46H
     Route: 042
     Dates: start: 20220720, end: 20221124
  4. METOPROLOL [Concomitant]
     Active Substance: METOPROLOL
     Indication: Hypertension
     Dosage: 100 MG, BID
     Route: 048
  5. CHOLECALCIFEROL [Concomitant]
     Active Substance: CHOLECALCIFEROL
     Indication: Prophylaxis
     Dosage: UNK UNK, QOW
     Route: 048
  6. LEVOTHYROXINE [Concomitant]
     Active Substance: LEVOTHYROXINE
     Indication: Prophylaxis
     Dosage: 125 UG, QD
     Route: 048
  7. FENTANYL [Concomitant]
     Active Substance: FENTANYL
     Indication: Pain
     Dosage: 100 MG, Q3D
     Route: 062
  8. CALCIUM [Concomitant]
     Active Substance: CALCIUM
     Indication: Osteoporosis
     Dosage: 500 MG, QOW
     Route: 048
  9. DENOSUMAB [Concomitant]
     Active Substance: DENOSUMAB
     Indication: Osteoporosis
     Dosage: 60 MG
     Route: 042
     Dates: start: 20220804
  10. MOXONIDINE [Concomitant]
     Active Substance: MOXONIDINE
     Indication: Hypertension
     Dosage: 0.2 MG, QD
     Route: 048
     Dates: start: 20220817
  11. RAMIPRIL [Concomitant]
     Active Substance: RAMIPRIL
     Indication: Hypertension
     Dosage: 5 MG, BID
     Route: 048
     Dates: start: 20220914
  12. LERCANIDIPINUM [Concomitant]
     Indication: Hypertension
     Dosage: 10 MG, BID
     Route: 048
     Dates: start: 20220928
  13. PREGABALIN [Concomitant]
     Active Substance: PREGABALIN
     Indication: Paraneoplastic pemphigus
     Dosage: 50 MG, BID
     Route: 048
     Dates: start: 20221213
  14. METAMIZOLE [Concomitant]
     Active Substance: METAMIZOLE
     Indication: Pain
     Dosage: 500 MG, QID
     Route: 048
     Dates: start: 20221213

REACTIONS (8)
  - Groin pain [Recovered/Resolved]
  - Condition aggravated [Recovered/Resolved]
  - SARS-CoV-2 test positive [Recovered/Resolved]
  - Osteoporotic fracture [Recovered/Resolved]
  - Muscle injury [Recovered/Resolved]
  - Pathological fracture [Recovered/Resolved]
  - Back pain [Recovered/Resolved]
  - Fatigue [Recovered/Resolved]

NARRATIVE: CASE EVENT DATE: 20221224
